FAERS Safety Report 10265962 (Version 1)
Quarter: 2014Q2

REPORT INFORMATION
  Report Type: Spontaneous
  Country: FR (occurrence: FR)
  Receive Date: 20140627
  Receipt Date: 20140627
  Transmission Date: 20141212
  Serious: Yes (Hospitalization, Other)
  Sender: FDA-Public Use
  Company Number: FR-NAPPMUNDI-GBR-2014-0018890

PATIENT
  Sex: Female

DRUGS (3)
  1. OXYCONTIN LP 10 MG, COMPRIME PELLICULE A LIBERATION PROLONGEE [Suspect]
     Indication: PAIN
     Dosage: UNK
     Route: 048
     Dates: start: 201310, end: 20140416
  2. OXYNORM [Suspect]
     Indication: PAIN
     Dosage: UNK
     Route: 048
     Dates: start: 200310, end: 20140416
  3. LITHIUM CARBONATE [Concomitant]
     Indication: PRODUCT USED FOR UNKNOWN INDICATION
     Dosage: 400 MG, 1.5 NOCTE
     Route: 048

REACTIONS (12)
  - Palpitations [Unknown]
  - Dyspnoea [Unknown]
  - Cardiomegaly [Unknown]
  - Oedema [Unknown]
  - Constipation [Unknown]
  - Malaise [Unknown]
  - Drug ineffective [Unknown]
  - Blood pressure fluctuation [Unknown]
  - Muscle tightness [Unknown]
  - Drug interaction [Unknown]
  - Serum ferritin decreased [Unknown]
  - Restlessness [Unknown]
